FAERS Safety Report 8989786 (Version 1)
Quarter: 2012Q4

REPORT INFORMATION
  Report Type: 
  Country: DK (occurrence: GB)
  Receive Date: 20121228
  Receipt Date: 20121228
  Transmission Date: 20130627
  Serious: Yes (Disabling, Other)
  Sender: FDA-Public Use
  Company Number: GB-FRI-1000041290

PATIENT
  Age: 52 Year
  Sex: Male
  Weight: 100 kg

DRUGS (6)
  1. CITALOPRAM [Suspect]
     Indication: DEPRESSION
     Dosage: 20 mg daily
     Route: 048
     Dates: start: 20110406, end: 201104
  2. CITALOPRAM [Suspect]
     Dosage: 0.2 mg
     Route: 048
     Dates: start: 201104, end: 201104
  3. FLUOXETINE [Suspect]
     Indication: DEPRESSION
     Dosage: 0.5 mg
     Route: 048
     Dates: start: 20110509, end: 201105
  4. FLUOXETINE [Suspect]
     Dosage: 0.2 mg
     Route: 048
     Dates: start: 201105, end: 20110527
  5. MIRTAZAPINE [Suspect]
     Indication: DEPRESSION
     Dosage: 0.3 mg
     Route: 048
     Dates: start: 20110610, end: 20110610
  6. IBUPROFEN [Concomitant]
     Indication: HEADACHE

REACTIONS (9)
  - Serotonin syndrome [Recovered/Resolved]
  - Locked-in syndrome [Recovered/Resolved]
  - Abdominal pain [Recovered/Resolved]
  - Nausea [Recovered/Resolved]
  - Movement disorder [Recovered/Resolved]
  - Hypersomnia [Recovered/Resolved]
  - Muscle twitching [Recovered/Resolved]
  - Muscle twitching [Recovered/Resolved]
  - Toxicity to various agents [Recovered/Resolved]
